FAERS Safety Report 6785024-1 (Version None)
Quarter: 2010Q2

REPORT INFORMATION
  Report Type: 
  Country: None (occurrence: None)
  Receive Date: 20100622
  Receipt Date: 20100615
  Transmission Date: 20101027
  Serious: Yes (Hospitalization)
  Sender: FDA-Public Use
  Company Number: PHHO2010US09111

PATIENT
  Sex: Female
  Weight: 78.8 kg

DRUGS (11)
  1. CERTICAN [Suspect]
     Indication: RENAL TRANSPLANT
     Dosage: 0.75 MG, BID
     Route: 048
     Dates: start: 20100611
  2. TACROLIMUS [Concomitant]
     Indication: RENAL TRANSPLANT
     Dosage: 2 MG, BID
     Route: 048
     Dates: start: 20100611
  3. SIMULECT [Concomitant]
     Indication: RENAL TRANSPLANT
     Dosage: 20 MG, UNK
     Route: 042
     Dates: start: 20100610
  4. AMLODIPINE BESYLATE [Concomitant]
     Indication: HYPERTENSION
  5. BUMETANIDE [Concomitant]
     Indication: RENAL FAILURE CHRONIC
  6. CLOTRIMAZOLE [Concomitant]
  7. INSULIN [Concomitant]
     Indication: HYPERGLYCAEMIA
  8. LATANOPROST [Concomitant]
  9. LEVOFLOXACIN [Concomitant]
  10. PANTOPRAZOLE [Concomitant]
     Indication: REFLUX GASTRITIS
  11. VALGANCICLOVIR [Concomitant]

REACTIONS (1)
  - RENAL TUBULAR NECROSIS [None]
